FAERS Safety Report 5367654-7 (Version None)
Quarter: 2007Q2

REPORT INFORMATION
  Report Type: 
  Country: None (occurrence: None)
  Receive Date: 20070622
  Receipt Date: 20070129
  Transmission Date: 20071010
  Serious: No
  Sender: FDA-Public Use
  Company Number: US-ASTRAZENECA-2007UW01764

PATIENT
  Age: 8 Month

DRUGS (1)
  1. PULMICORT RESPULES [Suspect]
     Route: 055

REACTIONS (1)
  - CUSHING'S SYNDROME [None]
